FAERS Safety Report 14626052 (Version 1)
Quarter: 2018Q1

REPORT INFORMATION
  Report Type: Report from Study
  Country: US (occurrence: US)
  Receive Date: 20180312
  Receipt Date: 20180312
  Transmission Date: 20180509
  Serious: Yes (Disabling, Other)
  Sender: FDA-Public Use
  Company Number: US-REGENERON PHARMACEUTICALS, INC.-2018-16970

PATIENT

DRUGS (1)
  1. EYLEA [Suspect]
     Active Substance: AFLIBERCEPT
     Indication: AGE-RELATED MACULAR DEGENERATION
     Dosage: OS
     Route: 031
     Dates: start: 20180205, end: 20180205

REACTIONS (4)
  - Headache [Unknown]
  - Vision blurred [Unknown]
  - Blindness [Unknown]
  - Anxiety [Unknown]
